FAERS Safety Report 17681100 (Version 3)
Quarter: 2020Q4

REPORT INFORMATION
  Report Type: Spontaneous
  Country: DE (occurrence: DE)
  Receive Date: 20200417
  Receipt Date: 20201001
  Transmission Date: 20210113
  Serious: Yes (Hospitalization, Other)
  Sender: FDA-Public Use
  Company Number: DE-MYLANLABS-2020M1038243

PATIENT
  Sex: Male
  Weight: 106 kg

DRUGS (18)
  1. PROVAS [Suspect]
     Active Substance: VALSARTAN
     Indication: PRODUCT USED FOR UNKNOWN INDICATION
     Dosage: 80 MILLIGRAM, QD (80 MG, QD IN MORNING )
  2. GLUCOBAY [Concomitant]
     Active Substance: ACARBOSE
     Indication: PRODUCT USED FOR UNKNOWN INDICATION
     Dosage: 50 MG, TID
     Route: 065
     Dates: start: 2008
  3. METOPROLOL. [Concomitant]
     Active Substance: METOPROLOL
     Indication: PRODUCT USED FOR UNKNOWN INDICATION
     Dosage: 100 MG(ONCE IN THE MORNING AND A HALF IN THE EVENING)
     Route: 065
     Dates: start: 2008
  4. METFORMIN [Concomitant]
     Active Substance: METFORMIN HYDROCHLORIDE
     Indication: PRODUCT USED FOR UNKNOWN INDICATION
     Dosage: 500 MG, TID
     Route: 065
     Dates: start: 2008
  5. AMITRIPTYLINE [Concomitant]
     Active Substance: AMITRIPTYLINE
     Indication: PRODUCT USED FOR UNKNOWN INDICATION
     Dosage: 25 MG, BID
     Route: 065
     Dates: start: 2008
  6. VOLTAREN PLUS [Concomitant]
     Active Substance: CODEINE PHOSPHATE\DICLOFENAC SODIUM
     Indication: PRODUCT USED FOR UNKNOWN INDICATION
     Dosage: UNK, QD, TID
  7. CARMEN                             /01366402/ [Concomitant]
     Active Substance: LERCANIDIPINE
     Indication: PRODUCT USED FOR UNKNOWN INDICATION
     Dosage: 20 MILLIGRAM, QD
  8. PARACETAMOL [Suspect]
     Active Substance: ACETAMINOPHEN
     Indication: PRODUCT USED FOR UNKNOWN INDICATION
     Dosage: 160 MG(ONE IN THE MORNING AND A HALF IN THE EVENING)
     Route: 065
     Dates: start: 2008
  9. NOVAMINOSULFON [Concomitant]
     Active Substance: METAMIZOLE SODIUM
     Indication: PRODUCT USED FOR UNKNOWN INDICATION
     Dosage: UNK
     Dates: start: 201106, end: 201106
  10. VALSARTAN DURA [Suspect]
     Active Substance: VALSARTAN
     Indication: PRODUCT USED FOR UNKNOWN INDICATION
     Dosage: 160 MILLIGRAM
     Route: 065
     Dates: start: 2008
  11. VALSARTAN. [Suspect]
     Active Substance: VALSARTAN
     Indication: PRODUCT USED FOR UNKNOWN INDICATION
     Dosage: 160 UNK (HALF OF 160 MG TABLET)
     Route: 065
     Dates: start: 2014
  12. PROVAS [Suspect]
     Active Substance: VALSARTAN
     Dosage: 160 MILLIGRAM, QD (160MG, QD IN MORNING )
     Dates: start: 200809
  13. NITRENDIPINE [Concomitant]
     Active Substance: NITRENDIPINE
     Indication: PRODUCT USED FOR UNKNOWN INDICATION
     Dosage: 1 DOSAGE FORM, QD
  14. PANTOZOL [Concomitant]
     Active Substance: PANTOPRAZOLE SODIUM
     Indication: PRODUCT USED FOR UNKNOWN INDICATION
     Dosage: 1 DOSAGE FORM, QD
  15. LERCANIDIPINE [Concomitant]
     Active Substance: LERCANIDIPINE
     Indication: PRODUCT USED FOR UNKNOWN INDICATION
     Dosage: 20 MG, QD
     Route: 065
     Dates: start: 2008
  16. SIMVASTATIN. [Concomitant]
     Active Substance: SIMVASTATIN
     Indication: PRODUCT USED FOR UNKNOWN INDICATION
     Dosage: 40 MG(HALF AT NIGHT)
     Route: 065
     Dates: start: 2008
  17. BELOC-ZOK COMP [Concomitant]
     Active Substance: HYDROCHLOROTHIAZIDE\METOPROLOL SUCCINATE
     Indication: PRODUCT USED FOR UNKNOWN INDICATION
     Dosage: UNK, QD, QD IN MORNING
  18. BERLOSIN [Concomitant]
     Active Substance: METAMIZOLE
     Indication: PRODUCT USED FOR UNKNOWN INDICATION
     Dosage: UNK, QD

REACTIONS (58)
  - Apnoea [Recovered/Resolved]
  - Hypopnoea [Recovering/Resolving]
  - Depression [Unknown]
  - Hyperlipidaemia [Unknown]
  - Facial spasm [Unknown]
  - Fall [Unknown]
  - Diabetic encephalopathy [Unknown]
  - Ventricular hypertrophy [Unknown]
  - Cataract [Unknown]
  - Bone cyst [Unknown]
  - Excessive eye blinking [Not Recovered/Not Resolved]
  - Spondylitis [Unknown]
  - Muscle spasms [Not Recovered/Not Resolved]
  - Presbyopia [Unknown]
  - Vision blurred [Unknown]
  - Disturbance in attention [Unknown]
  - Hypersomnia [Unknown]
  - Fatigue [Unknown]
  - Tension headache [Recovering/Resolving]
  - Head titubation [Unknown]
  - Rotator cuff syndrome [Unknown]
  - Dry eye [Unknown]
  - Adjustment disorder [Unknown]
  - Blepharochalasis [Unknown]
  - Astigmatism [Unknown]
  - Musculoskeletal discomfort [Unknown]
  - Sleep apnoea syndrome [Recovering/Resolving]
  - Metabolic disorder [Unknown]
  - Spinal osteoarthritis [Unknown]
  - Obesity [Unknown]
  - Sciatica [Unknown]
  - Somnolence [Not Recovered/Not Resolved]
  - Aortic valve incompetence [Unknown]
  - Hypertension [Unknown]
  - Osteoarthritis [Unknown]
  - Burnout syndrome [Not Recovered/Not Resolved]
  - Nasopharyngitis [Recovered/Resolved]
  - Respiratory arrest [Recovering/Resolving]
  - Diabetes mellitus [Unknown]
  - Depressed mood [Not Recovered/Not Resolved]
  - Muscle atrophy [Unknown]
  - Exercise tolerance decreased [Not Recovered/Not Resolved]
  - Medication error [Unknown]
  - Arthralgia [Unknown]
  - Hypoxia [Unknown]
  - Snoring [Not Recovered/Not Resolved]
  - Headache [Not Recovered/Not Resolved]
  - Atrial enlargement [Unknown]
  - Quality of life decreased [Unknown]
  - Wrong technique in product usage process [Unknown]
  - Emotional distress [Unknown]
  - Infected dermal cyst [Recovered/Resolved]
  - Lymphadenopathy [Unknown]
  - Exostosis [Unknown]
  - Foot deformity [Unknown]
  - Hypermetropia [Unknown]
  - Tinnitus [Unknown]
  - Pelvic pain [Unknown]

NARRATIVE: CASE EVENT DATE: 2008
